FAERS Safety Report 8060359-3 (Version None)
Quarter: 2012Q1

REPORT INFORMATION
  Report Type: 
  Country: None (occurrence: None)
  Receive Date: 20120119
  Receipt Date: 20120119
  Transmission Date: 20120608
  Serious: Yes (Hospitalization)
  Sender: FDA-Public Use
  Company Number: None

PATIENT
  Age: 71 Year
  Sex: Male
  Weight: 106.6 kg

DRUGS (12)
  1. CA + VIT D [Concomitant]
  2. CLINDAMYCIN [Concomitant]
  3. VICODIN [Concomitant]
  4. KEFLEX [Concomitant]
  5. BETASERON [Concomitant]
  6. M.V.I. [Concomitant]
  7. VITAMIN D [Concomitant]
  8. XARELTO [Suspect]
     Indication: DEEP VEIN THROMBOSIS
     Dosage: 10MG DAILY  RECENT
  9. ASPIRIN [Suspect]
     Indication: PROPHYLAXIS
     Dosage: 81MG DAILY PO CHRONIC
     Route: 048
  10. VESICARE [Concomitant]
  11. SANCTURA [Concomitant]
  12. LYRICA [Concomitant]

REACTIONS (4)
  - DIVERTICULITIS INTESTINAL HAEMORRHAGIC [None]
  - ANAL FISSURE [None]
  - ANAEMIA [None]
  - INTERNATIONAL NORMALISED RATIO INCREASED [None]
